FAERS Safety Report 6823399-5 (Version None)
Quarter: 2010Q3

REPORT INFORMATION
  Report Type: 
  Country: None (occurrence: None)
  Receive Date: 20100708
  Receipt Date: 20100629
  Transmission Date: 20110219
  Serious: Yes (Other)
  Sender: FDA-Public Use
  Company Number: US-PFIZER INC-2010081431

PATIENT
  Sex: Male

DRUGS (4)
  1. METRONIDAZOLE [Suspect]
     Dosage: 500 MG, 3X/DAY
  2. FLUCONAZOLE [Interacting]
     Dosage: 400 MG, 1X/DAY
  3. CIPROFLOXACIN [Interacting]
     Dosage: 750 MG, 2X/DAY
  4. WARFARIN [Interacting]

REACTIONS (2)
  - DRUG INTERACTION [None]
  - INTERNATIONAL NORMALISED RATIO INCREASED [None]
